FAERS Safety Report 17228297 (Version 1)
Quarter: 2020Q1

REPORT INFORMATION
  Report Type: Spontaneous
  Country: GB (occurrence: GB)
  Receive Date: 20200103
  Receipt Date: 20200103
  Transmission Date: 20200409
  Serious: Yes (Death, Life-Threatening, Hospitalization, Other)
  Sender: FDA-Public Use
  Company Number: GB-MACLEODS PHARMACEUTICALS US LTD-MAC2019024628

PATIENT

DRUGS (4)
  1. TRAMADOL TABLETS [Suspect]
     Active Substance: TRAMADOL HYDROCHLORIDE
     Indication: RIB FRACTURE
     Dosage: 100 MILLIGRAM, QID
     Route: 065
  2. TRAMADOL TABLETS [Suspect]
     Active Substance: TRAMADOL HYDROCHLORIDE
     Dosage: 8450 MILLIGRAM (ON THE DAY OF HIS OUTPATIENT VISIT)
     Route: 065
  3. AZATHIOPRINE. [Suspect]
     Active Substance: AZATHIOPRINE
     Indication: IDIOPATHIC PULMONARY FIBROSIS
     Dosage: 100 MILLIGRAM, DAILY
     Route: 065
  4. PREDNISOLONE 20 MG [Suspect]
     Active Substance: PREDNISOLONE
     Indication: IDIOPATHIC PULMONARY FIBROSIS
     Dosage: 20 MILLIGRAM, QD
     Route: 065

REACTIONS (5)
  - Drug ineffective [Unknown]
  - Accidental overdose [Unknown]
  - Cardio-respiratory arrest [Fatal]
  - Hepatic necrosis [Fatal]
  - Pulmonary fibrosis [Fatal]
